FAERS Safety Report 6044316-4 (Version None)
Quarter: 2009Q1

REPORT INFORMATION
  Report Type: 
  Country: None (occurrence: None)
  Receive Date: 20090120
  Receipt Date: 20090109
  Transmission Date: 20090719
  Serious: Yes (Hospitalization)
  Sender: FDA-Public Use
  Company Number: AU-ROCHE-607245

PATIENT
  Age: 72 Year
  Sex: Female
  Weight: 67 kg

DRUGS (7)
  1. DIAZEPAM [Suspect]
     Indication: DRUG USE FOR UNKNOWN INDICATION
     Dosage: TOOK DIAZEPAM 2 MG 50 OVER A 3 MONTH PERIOD ON AND OFF
     Route: 048
  2. CRANBERRY [Concomitant]
  3. FISH OIL [Concomitant]
     Dosage: DRUG NAME: FISH OIL NOS
  4. GLUCOSAMINE HYDROCHLORIDE [Concomitant]
  5. MAGNESIUM NOS [Concomitant]
  6. NAPROXEN [Concomitant]
     Dosage: FREQUENCY: AS NECESSARY
  7. PLAQUENIL [Concomitant]
     Dosage: FREQUENCY: DAILY
     Route: 048

REACTIONS (5)
  - DIZZINESS [None]
  - MALAISE [None]
  - NAUSEA [None]
  - SYNCOPE [None]
  - VOMITING [None]
